FAERS Safety Report 4332313-6 (Version None)
Quarter: 2004Q1

REPORT INFORMATION
  Report Type: 
  Country: None (occurrence: None)
  Receive Date: 20040331
  Receipt Date: 20040317
  Transmission Date: 20041129
  Serious: Yes (Hospitalization)
  Sender: FDA-Public Use
  Company Number: 2004-06811

PATIENT
  Age: 55 Year
  Sex: Female

DRUGS (5)
  1. ADEFOVIR DIPIVOXIL [Suspect]
     Indication: HEPATITIS B
     Dosage: 10 MG QOD PO
     Dates: start: 20030906
  2. ADEFOVIR DIPIVOXIL [Suspect]
     Indication: HEPATITIS B
     Dosage: 10 MG QD PO
     Dates: start: 20030704, end: 20030101
  3. ADEFOVIR DIPIVOXIL [Suspect]
     Indication: HEPATITIS B
     Dosage: 10 MG QOD PO
     Dates: start: 20030508, end: 20030101
  4. ADEFOVIR DIPIVOXIL [Suspect]
     Indication: HEPATITIS B
     Dosage: 10 MG QD PO
     Dates: start: 20030410, end: 20030507
  5. LAMIVUDINE [Concomitant]

REACTIONS (2)
  - PANCREATITIS ACUTE [None]
  - PORTAL VEIN THROMBOSIS [None]
